FAERS Safety Report 11831710 (Version 1)
Quarter: 2015Q4

REPORT INFORMATION
  Report Type: Spontaneous
  Country: US (occurrence: None)
  Receive Date: 20151211
  Receipt Date: 20151211
  Transmission Date: 20160305
  Serious: Yes (Other)
  Sender: FDA-Public Use
  Company Number: None

PATIENT
  Age: 64 Year
  Sex: Female

DRUGS (1)
  1. OTREXUP [Suspect]
     Active Substance: METHOTREXATE
     Indication: RHEUMATOID ARTHRITIS
     Dosage: 15MG/0.4ML WEEKLY SUBCUTANEOUS
     Route: 058
     Dates: start: 20151119

REACTIONS (2)
  - Headache [None]
  - Diarrhoea [None]

NARRATIVE: CASE EVENT DATE: 20151119
